FAERS Safety Report 5450291-3 (Version None)
Quarter: 2007Q3

REPORT INFORMATION
  Report Type: 
  Country: None (occurrence: None)
  Receive Date: 20070912
  Receipt Date: 20070906
  Transmission Date: 20080115
  Serious: Yes (Hospitalization)
  Sender: FDA-Public Use
  Company Number: US-AMGEN-US207454

PATIENT
  Sex: Female

DRUGS (1)
  1. ENBREL [Suspect]
     Indication: RHEUMATOID ARTHRITIS
     Route: 058
     Dates: start: 20020101

REACTIONS (5)
  - DERMATITIS [None]
  - GASTROINTESTINAL DISORDER [None]
  - INJECTION SITE REACTION [None]
  - PANCREAS TRANSPLANT [None]
  - RENAL TRANSPLANT [None]
